FAERS Safety Report 13155531 (Version 1)
Quarter: 2017Q1

REPORT INFORMATION
  Report Type: Spontaneous
  Country: CN (occurrence: CN)
  Receive Date: 20170126
  Receipt Date: 20170126
  Transmission Date: 20170428
  Serious: Yes (Other)
  Sender: FDA-Public Use
  Company Number: CN-PFIZER INC-2017031881

PATIENT
  Age: 58 Year
  Sex: Female
  Weight: 60 kg

DRUGS (5)
  1. RITUXAN [Suspect]
     Active Substance: RITUXIMAB
     Dosage: 500 MG, 1X/DAY
     Route: 041
     Dates: start: 20160811, end: 20160811
  2. ENDOXAN [Suspect]
     Active Substance: CYCLOPHOSPHAMIDE
     Indication: NON-HODGKIN^S LYMPHOMA
     Dosage: 1.1 G, 1X/DAY
     Route: 041
     Dates: start: 20160811, end: 20160811
  3. VINDESINE SULFATE [Suspect]
     Active Substance: VINDESINE SULFATE
     Indication: NON-HODGKIN^S LYMPHOMA
     Dosage: 4 MG, 1X/DAY
     Route: 041
     Dates: start: 20160811, end: 20160811
  4. PHARMORUBICIN [Suspect]
     Active Substance: EPIRUBICIN
     Indication: NON-HODGKIN^S LYMPHOMA
     Dosage: 110 MG, 1X/DAY
     Route: 041
     Dates: start: 20160811, end: 20160811
  5. RITUXAN [Suspect]
     Active Substance: RITUXIMAB
     Indication: NON-HODGKIN^S LYMPHOMA
     Dosage: 100 MG, 1X/DAY
     Route: 041
     Dates: start: 20160811, end: 20160811

REACTIONS (3)
  - Immunodeficiency [Recovering/Resolving]
  - C-reactive protein increased [Recovering/Resolving]
  - Bone marrow failure [Recovering/Resolving]

NARRATIVE: CASE EVENT DATE: 20160819
